FAERS Safety Report 12245500 (Version 1)
Quarter: 2016Q2

REPORT INFORMATION
  Report Type: Spontaneous
  Country: US (occurrence: US)
  Receive Date: 20160407
  Receipt Date: 20160407
  Transmission Date: 20160815
  Serious: No
  Sender: FDA-Public Use
  Company Number: US-ACTAVIS-2015-16608

PATIENT
  Sex: Male

DRUGS (1)
  1. DIAZEPAM (AELLC) [Suspect]
     Active Substance: DIAZEPAM
     Indication: GENERALISED ANXIETY DISORDER
     Dosage: 10 MG, TID
     Route: 048
     Dates: start: 201505

REACTIONS (1)
  - Drug ineffective [Not Recovered/Not Resolved]
